FAERS Safety Report 18081311 (Version 1)
Quarter: 2020Q3

REPORT INFORMATION
  Report Type: Other
  Country: ES (occurrence: ES)
  Receive Date: 20200728
  Receipt Date: 20200728
  Transmission Date: 20201103
  Serious: Yes (Hospitalization, Other)
  Sender: FDA-Public Use
  Company Number: ES-DEXPHARM-20200639

PATIENT
  Age: 83 Year
  Sex: Male

DRUGS (9)
  1. NIFEDIPINE. [Concomitant]
     Active Substance: NIFEDIPINE
  2. IRBESARTAN/HYDROCHLOROTHIAZIDE [Suspect]
     Active Substance: HYDROCHLOROTHIAZIDE\IRBESARTAN
  3. GLICLAZIDE [Concomitant]
     Active Substance: GLICLAZIDE
  4. RILUZOLE. [Concomitant]
     Active Substance: RILUZOLE
  5. SIMVASTATIN. [Concomitant]
     Active Substance: SIMVASTATIN
  6. LORAZEPAM. [Interacting]
     Active Substance: LORAZEPAM
  7. OMEPRAZOLE. [Interacting]
     Active Substance: OMEPRAZOLE
  8. ESCITALOPRAM [Interacting]
     Active Substance: ESCITALOPRAM OXALATE
  9. METFORMIN [Concomitant]
     Active Substance: METFORMIN HYDROCHLORIDE

REACTIONS (2)
  - Drug interaction [Unknown]
  - Inappropriate antidiuretic hormone secretion [Recovered/Resolved]
